FAERS Safety Report 7517431-3 (Version None)
Quarter: 2011Q2

REPORT INFORMATION
  Report Type: 
  Country: None (occurrence: None)
  Receive Date: 20110601
  Receipt Date: 20110527
  Transmission Date: 20111010
  Serious: Yes (Death, Other)
  Sender: FDA-Public Use
  Company Number: FR-PFIZER INC-2011091298

PATIENT
  Age: 73 Year
  Sex: Female

DRUGS (16)
  1. TRAMADOL HCL [Suspect]
     Indication: ARTHRALGIA
     Dosage: 300 MG, UNK
     Route: 042
     Dates: start: 20110222, end: 20110223
  2. EUPRESSYL [Suspect]
     Indication: HYPERTENSION
     Dosage: 60 MG, 2X/DAY
     Route: 048
     Dates: end: 20110301
  3. LOVENOX [Suspect]
     Indication: THROMBOSIS PROPHYLAXIS
     Dosage: 400 IU/ 0.4 ML (1 INJECTION  POST-OPERATIVELY)
     Route: 058
     Dates: start: 20110222, end: 20110222
  4. LASIX [Suspect]
     Indication: HYPERTENSION
     Dosage: 60 MG, DAILY
     Route: 048
     Dates: end: 20110301
  5. FERROUS SULFATE TAB [Suspect]
     Indication: ANAEMIA
     Dosage: 1 DF, DAILY
     Route: 048
     Dates: start: 20110223, end: 20110301
  6. HYDERGINE [Suspect]
     Dosage: 4.5 MG, DAILY
     Route: 048
     Dates: end: 20110301
  7. XYZAL [Suspect]
     Dosage: 10 MG, UNK
     Route: 048
     Dates: end: 20110301
  8. PANTOPRAZOLE SODIUM [Suspect]
     Dosage: 40 MG, 1X/DAY
     Route: 048
     Dates: end: 20110301
  9. XANAX [Suspect]
     Indication: ANXIETY
     Dosage: 0.5 MG, 1X/DAY
     Route: 048
     Dates: end: 20110301
  10. PRADAXA [Suspect]
     Indication: THROMBOSIS PROPHYLAXIS
     Dosage: 110 MG, 2X/DAY
     Route: 048
     Dates: start: 20110223, end: 20110228
  11. TRAMADOL HCL [Suspect]
     Dosage: 150 MG, UNK
     Route: 048
     Dates: start: 20110225, end: 20110301
  12. ACETAMINOPHEN [Suspect]
     Indication: ARTHRALGIA
     Dosage: 3 G, DAILY
     Route: 048
     Dates: start: 20110224, end: 20110301
  13. CELIPROLOL [Suspect]
     Indication: HYPERTENSION
     Dosage: 200 MG/DAY
     Route: 048
     Dates: end: 20110301
  14. ART 50 [Suspect]
     Indication: OSTEOARTHRITIS
     Dosage: 100 MG, DAILY
     Route: 048
     Dates: end: 20110301
  15. VALSARTAN  AND HYDROCHLOROTHIAZIDE [Suspect]
     Indication: HYPERTENSION
     Dosage: 165/25MG ; 1 PER DAY
     Route: 048
     Dates: end: 20110301
  16. ACETAMINOPHEN [Suspect]
     Indication: ARTHRALGIA
     Dosage: 1 G, 4X/DAY
     Route: 042
     Dates: start: 20110222, end: 20110223

REACTIONS (1)
  - SUDDEN DEATH [None]
